FAERS Safety Report 4990434-9 (Version None)
Quarter: 2006Q1

REPORT INFORMATION
  Report Type: 
  Country: None (occurrence: None)
  Receive Date: 20060315
  Receipt Date: 20050318
  Transmission Date: 20060701
  Serious: Yes (Hospitalization, Other)
  Sender: FDA-Public Use
  Company Number: USA050393605

PATIENT
  Sex: Female

DRUGS (3)
  1. GEMZAR [Suspect]
     Indication: NON-SMALL CELL LUNG CANCER
  2. CARBOPLATIN [Concomitant]
  3. TARCEVA [Concomitant]

REACTIONS (4)
  - DYSPNOEA [None]
  - HAEMORRHAGE [None]
  - METASTASES TO BONE [None]
  - PLATELET COUNT DECREASED [None]
